FAERS Safety Report 9381659 (Version 1)
Quarter: 2013Q3

REPORT INFORMATION
  Report Type: Report from Study
  Country: US (occurrence: US)
  Receive Date: 20130703
  Receipt Date: 20130703
  Transmission Date: 20140515
  Serious: Yes (Hospitalization)
  Sender: FDA-Public Use
  Company Number: US-PFIZER INC-2013193091

PATIENT
  Age: 56 Year
  Sex: Female
  Weight: 91.7 kg

DRUGS (17)
  1. DOXORUBICIN HCL [Suspect]
     Indication: SARCOMA
     Dosage: SOLUTION FOR INFUSION, REGIMEN 1: IV BOLUS
     Route: 042
     Dates: start: 20120705, end: 20120705
  2. DOXORUBICIN HCL [Suspect]
     Dosage: REGIMEN 2; 56.25 MG/M2 / 116MG/ IV BOLUS/ CYCLE #4; IV BOLUS
     Route: 042
     Dates: start: 20120905
  3. CIPROFLOXACIN [Concomitant]
     Dosage: UNK
     Dates: start: 20120907, end: 20120916
  4. ACETYLSALICYLIC ACID [Concomitant]
     Dosage: UNK
     Dates: start: 20120616
  5. BENADRYL ALLERGY [Concomitant]
     Dosage: UNK
     Dates: start: 2010
  6. LAXATIVES [Concomitant]
     Dosage: UNK
     Dates: start: 2010
  7. TYLENOL [Concomitant]
     Dosage: UNK
     Dates: start: 1992
  8. ALEVE [Concomitant]
     Dosage: UNK
     Dates: start: 20120705
  9. PROCHLORPERAZINE MALEATE [Concomitant]
     Dosage: UNK
     Dates: start: 20120705
  10. LORAZEPAM [Concomitant]
     Dosage: UNK
     Dates: start: 20120705
  11. LIDOCAINE [Concomitant]
     Dosage: UNK
     Dates: start: 20120705
  12. DEXAMETHASONE [Concomitant]
     Dosage: UNK
     Dates: start: 20120706
  13. FOSAPREPITANT [Concomitant]
     Dosage: UNK
     Dates: start: 20120705
  14. PALONOSETRON [Concomitant]
     Dosage: UNK
     Dates: start: 20120705
  15. ONDANSETRON [Concomitant]
     Dosage: UNK
     Dates: start: 20120711
  16. PHENYLEPHRINE [Concomitant]
     Dosage: UNK
     Dates: start: 20120705
  17. OXYGEN [Concomitant]
     Dosage: UNK
     Dates: start: 20120619

REACTIONS (3)
  - Rectal fissure [Recovered/Resolved]
  - Pyrexia [Recovered/Resolved]
  - Urinary tract infection [Recovered/Resolved]
